FAERS Safety Report 5847436-X (Version None)
Quarter: 2008Q3

REPORT INFORMATION
  Report Type: 
  Country: None (occurrence: None)
  Receive Date: 20080813
  Receipt Date: 20080801
  Transmission Date: 20090109
  Serious: Yes (Other)
  Sender: FDA-Public Use
  Company Number: 100#03#2008-03908

PATIENT
  Age: 60 Year
  Sex: Female

DRUGS (2)
  1. ALENDRONIC ACID (ALENDRONIC ACID) [Suspect]
     Indication: OSTEOPOROSIS
     Dosage: 70 MG ONCE WEEKLY
     Route: 048
     Dates: end: 20080610
  2. IBUPROFEN [Concomitant]

REACTIONS (5)
  - ABDOMINAL DISCOMFORT [None]
  - HALLUCINATION [None]
  - MOOD ALTERED [None]
  - MYODESOPSIA [None]
  - SUICIDAL IDEATION [None]
